FAERS Safety Report 5641699-1 (Version None)
Quarter: 2008Q1

REPORT INFORMATION
  Report Type: 
  Country: None (occurrence: None)
  Receive Date: 20080131
  Receipt Date: 20071012
  Transmission Date: 20080703
  Serious: No
  Sender: FDA-Public Use
  Company Number: PHEH2007US13519

PATIENT

DRUGS (4)
  1. TEKTURNA [Suspect]
     Indication: HYPERTENSION
     Dosage: 150 MG, QD
  2. HYDROCHLOROTHIAZIDE [Concomitant]
  3. ANGIOTENSIN II ANTAGONISTS (NO INGREDIENTS/SUBSTANCES) [Concomitant]
  4. BETA BLOCKING AGENTS (NO INGREDIENTS/SUBSTANCES) [Concomitant]

REACTIONS (1)
  - PALPITATIONS [None]
